FAERS Safety Report 20029789 (Version 1)
Quarter: 2021Q4

REPORT INFORMATION
  Report Type: Spontaneous
  Country: IT (occurrence: None)
  Receive Date: 20211103
  Receipt Date: 20211103
  Transmission Date: 20220303
  Serious: Yes (Other)
  Sender: FDA-Public Use
  Company Number: None

PATIENT
  Age: 75 Year
  Sex: Male

DRUGS (5)
  1. IRINOTECAN [Suspect]
     Active Substance: IRINOTECAN
     Indication: Pancreatic carcinoma
     Dosage: CUMULATIVE DOSE TO FIRST REACTION:	280.8 MG
     Route: 042
     Dates: start: 20210821
  2. OXALIPLATIN [Suspect]
     Active Substance: OXALIPLATIN
     Indication: Pancreatic carcinoma
     Dosage: CUMULATIVE DOSE TO FIRST REACTION: 136.6 MG
     Route: 042
     Dates: start: 20210621
  3. FLUOROURACIL [Suspect]
     Active Substance: FLUOROURACIL
     Indication: Pancreatic carcinoma
     Dosage: CUMULATIVE DOSE TO FIRST REACTION: 3744 MG
     Route: 041
     Dates: start: 20210621
  4. FLUOROURACIL [Suspect]
     Active Substance: FLUOROURACIL
     Indication: Pancreatic carcinoma
     Dosage: CUMULATIVE DOSE TO FIRST REACTION: 624 MG
     Route: 040
     Dates: start: 20210621
  5. LEVOLEUCOVORIN CALCIUM [Suspect]
     Active Substance: LEVOLEUCOVORIN CALCIUM
     Indication: Pancreatic carcinoma
     Dosage: CUMULATIVE DOSE TO FIRST REACTION: 312 MG
     Route: 042
     Dates: start: 20210621

REACTIONS (1)
  - Sciatic nerve palsy [Not Recovered/Not Resolved]

NARRATIVE: CASE EVENT DATE: 20211015
